FAERS Safety Report 7406721-0 (Version None)
Quarter: 2011Q2

REPORT INFORMATION
  Report Type: 
  Country: None (occurrence: None)
  Receive Date: 20110411
  Receipt Date: 20110401
  Transmission Date: 20111010
  Serious: Yes (Hospitalization, Congenital Anomaly)
  Sender: FDA-Public Use
  Company Number: US-CEPHALON-2011001382

PATIENT
  Sex: Female
  Weight: 3 kg

DRUGS (4)
  1. PROVIGIL [Suspect]
     Route: 064
     Dates: end: 20100801
  2. ALLEGRA [Concomitant]
     Route: 064
     Dates: end: 20100801
  3. VALTREX [Concomitant]
     Route: 064
     Dates: end: 20100801
  4. ZOLOFT [Concomitant]
     Route: 064
     Dates: end: 20100801

REACTIONS (1)
  - INTESTINAL MALROTATION [None]
